FAERS Safety Report 7362848-3 (Version None)
Quarter: 2011Q1

REPORT INFORMATION
  Report Type: 
  Country: None (occurrence: None)
  Receive Date: 20110321
  Receipt Date: 20110310
  Transmission Date: 20110831
  Serious: No
  Sender: FDA-Public Use
  Company Number: US-BIOGENIDEC-2011BI009459

PATIENT
  Age: 46 Year
  Sex: Female

DRUGS (2)
  1. TYSABRI [Suspect]
     Indication: MULTIPLE SCLEROSIS
     Route: 042
     Dates: start: 20110307
  2. TYSABRI [Suspect]
     Route: 042
     Dates: start: 20100405, end: 20100405

REACTIONS (2)
  - TONGUE ULCERATION [None]
  - DYSPHAGIA [None]
